FAERS Safety Report 7834047-X (Version None)
Quarter: 2011Q4

REPORT INFORMATION
  Report Type: 
  Country: None (occurrence: None)
  Receive Date: 20111024
  Receipt Date: 20111024
  Transmission Date: 20120403
  Serious: Yes (Other)
  Sender: FDA-Public Use
  Company Number: None

PATIENT
  Age: 24 Year
  Sex: Male

DRUGS (1)
  1. ULTRAVIST 150 [Suspect]
     Indication: COMPUTERISED TOMOGRAM
     Dates: start: 20111017, end: 20111017

REACTIONS (5)
  - RASH [None]
  - URTICARIA [None]
  - PERIORBITAL OEDEMA [None]
  - CONTRAST MEDIA REACTION [None]
  - FLUSHING [None]
